FAERS Safety Report 25467998 (Version 3)
Quarter: 2025Q3

REPORT INFORMATION
  Report Type: Spontaneous
  Country: US (occurrence: US)
  Receive Date: 20250623
  Receipt Date: 20250812
  Transmission Date: 20251020
  Serious: No
  Sender: PFIZER
  Company Number: US-PFIZER INC-202500121902

PATIENT
  Age: 17 Year
  Sex: Female
  Weight: 52.62 kg

DRUGS (2)
  1. GENOTROPIN [Suspect]
     Active Substance: SOMATROPIN
     Indication: Turner^s syndrome
     Dosage: 2.2 MG, 1X/DAY (SHOT IN ARM OR UPPER THIGH)
     Dates: start: 202505
  2. ESTROGENS [Concomitant]
     Active Substance: ESTROGENS
     Indication: Turner^s syndrome

REACTIONS (3)
  - Product administered at inappropriate site [Unknown]
  - Device physical property issue [Unknown]
  - Device breakage [Unknown]

NARRATIVE: CASE EVENT DATE: 20250614
